FAERS Safety Report 10378031 (Version 1)
Quarter: 2014Q1

REPORT INFORMATION
  Report Type: Spontaneous
  Country: US (occurrence: None)
  Receive Date: 20140306
  Receipt Date: 20140306
  Transmission Date: 20141002
  Serious: Yes (Hospitalization)
  Sender: FDA-Public Use
  Company Number: 163-21880-13032068

PATIENT
  Age: 83 Year
  Sex: Male

DRUGS (4)
  1. REVLIMID (LENALIDOMIDE) (CAPSULES) [Suspect]
     Indication: MYELODYSPLASTIC SYNDROME
     Dosage: 21 IN 28 D
     Route: 048
     Dates: start: 20130719
  2. RANITIDINE [Concomitant]
  3. METFORMIN [Concomitant]
  4. ASPIRIN (ACETYLSALICYLIC ACID) [Concomitant]

REACTIONS (1)
  - Haemoglobin decreased [None]
